FAERS Safety Report 4603663-0 (Version None)
Quarter: 2005Q1

REPORT INFORMATION
  Report Type: 
  Country: None (occurrence: None)
  Receive Date: 20050308
  Receipt Date: 20050224
  Transmission Date: 20050727
  Serious: Yes (Hospitalization)
  Sender: FDA-Public Use
  Company Number: 2005036911

PATIENT
  Age: 19 Year
  Sex: Female

DRUGS (2)
  1. LINEZOLID SOLUTION, STERILE (LINEZOLID) [Suspect]
     Indication: PNEUMONIA
  2. LINEZOLID SOLUTION, STERILE (LINEZOLID) [Suspect]
     Indication: SEPSIS

REACTIONS (3)
  - HEPATOMEGALY [None]
  - SPLENOMEGALY [None]
  - THROMBOCYTOPENIA [None]
